FAERS Safety Report 9374457 (Version 1)
Quarter: 2013Q2

REPORT INFORMATION
  Report Type: Spontaneous
  Country: AT (occurrence: AT)
  Receive Date: 20130628
  Receipt Date: 20130628
  Transmission Date: 20140414
  Serious: Yes (Death, Other)
  Sender: FDA-Public Use
  Company Number: AT-ASTELLAS-2013EU005431

PATIENT
  Age: 56 Year
  Sex: Male

DRUGS (14)
  1. TACROLIMUS SYSTEMIC [Suspect]
     Indication: LUNG TRANSPLANT
     Dosage: UNK
     Route: 065
  2. DACLIZUMAB [Suspect]
     Indication: LUNG TRANSPLANT
     Dosage: UNK
     Route: 065
  3. MYCOPHENOLATE MOFETIL [Suspect]
     Indication: LUNG TRANSPLANT
     Dosage: UNK
     Route: 065
  4. CORTICOSTEROID NOS [Suspect]
     Indication: LUNG TRANSPLANT
     Dosage: UNK
     Route: 065
  5. CYCLOPHOSPHAMIDE [Concomitant]
     Indication: CHEMOTHERAPY
     Dosage: UNK
     Route: 065
  6. DOXORUBICIN [Concomitant]
     Indication: CHEMOTHERAPY
     Dosage: UNK
     Route: 065
  7. VINCRISTINE [Concomitant]
     Indication: CHEMOTHERAPY
     Dosage: UNK
     Route: 065
  8. PREDNISONE [Concomitant]
     Indication: CHEMOTHERAPY
     Dosage: UNK
     Route: 065
  9. ALEMTUZUMAB [Concomitant]
     Indication: CHEMOTHERAPY
     Dosage: UNK
     Route: 065
  10. VALGANCICLOVIR [Concomitant]
     Indication: ANTIVIRAL PROPHYLAXIS
     Dosage: UNK
     Route: 065
  11. POSACONAZOLE [Concomitant]
     Indication: PROPHYLAXIS
     Dosage: UNK
     Route: 065
  12. VORICONAZOLE [Concomitant]
     Indication: PROPHYLAXIS
     Dosage: UNK
     Route: 065
  13. CASPOFUNGIN [Concomitant]
     Indication: PROPHYLAXIS
     Dosage: UNK
     Route: 065
  14. AMPHOTERICIN [Concomitant]
     Indication: ZYGOMYCOSIS
     Dosage: UNK
     Route: 065

REACTIONS (6)
  - Off label use [Unknown]
  - Pulmonary mycosis [Fatal]
  - Multi-organ failure [Fatal]
  - Pulmonary vein stenosis [Unknown]
  - Pulmonary embolism [Unknown]
  - Graft dysfunction [Unknown]
